FAERS Safety Report 13445766 (Version 3)
Quarter: 2017Q3

REPORT INFORMATION
  Report Type: Spontaneous
  Country: JP (occurrence: JP)
  Receive Date: 20170416
  Receipt Date: 20170725
  Transmission Date: 20171127
  Serious: Yes (Life-Threatening, Hospitalization, Other)
  Sender: FDA-Public Use
  Company Number: JP-009507513-1704JPN006009

PATIENT
  Age: 14 Year
  Sex: Male

DRUGS (2)
  1. METHYLPREDNISOLONE. [Suspect]
     Active Substance: METHYLPREDNISOLONE
     Indication: POLYNEUROPATHY
     Dosage: PULSE THERAPY
  2. DEXAMETHASONE. [Suspect]
     Active Substance: DEXAMETHASONE
     Indication: ENCEPHALOPATHY
     Route: 042

REACTIONS (3)
  - Gastric perforation [Recovered/Resolved]
  - Hypertension [Recovered/Resolved]
  - Polyneuropathy [Recovered/Resolved]
